FAERS Safety Report 12325886 (Version 2)
Quarter: 2016Q2

REPORT INFORMATION
  Report Type: Spontaneous
  Country: CN (occurrence: CN)
  Receive Date: 20160503
  Receipt Date: 20160506
  Transmission Date: 20160815
  Serious: Yes (Death)
  Sender: FDA-Public Use
  Company Number: CN-ROCHE-1750916

PATIENT
  Age: 40 Year
  Sex: Female

DRUGS (1)
  1. HERCEPTIN [Suspect]
     Active Substance: TRASTUZUMAB
     Indication: BREAST CANCER
     Route: 041
     Dates: start: 20160428

REACTIONS (4)
  - Hypersensitivity [Fatal]
  - Cardiac failure acute [Fatal]
  - Acute respiratory failure [Fatal]
  - Infusion related reaction [Fatal]

NARRATIVE: CASE EVENT DATE: 20160428
